FAERS Safety Report 9455788 (Version 5)
Quarter: 2013Q4

REPORT INFORMATION
  Report Type: Report from Study
  Country: CA (occurrence: CA)
  Receive Date: 20130813
  Receipt Date: 20131015
  Transmission Date: 20140711
  Serious: Yes (Life-Threatening, Hospitalization, Other)
  Sender: FDA-Public Use
  Company Number: CA-SANOFI-AVENTIS-2013SA077640

PATIENT
  Age: 69 Year
  Sex: Female
  Weight: 42.2 kg

DRUGS (13)
  1. AFLIBERCEPT [Suspect]
     Indication: CHOLANGIOCARCINOMA
     Route: 042
     Dates: start: 20130327, end: 20130327
  2. AFLIBERCEPT [Suspect]
     Indication: CHOLANGIOCARCINOMA
     Route: 042
     Dates: start: 20130703, end: 20130703
  3. SAR307746 [Suspect]
     Indication: CHOLANGIOCARCINOMA
     Route: 042
     Dates: start: 20130327, end: 20130327
  4. SAR307746 [Suspect]
     Indication: CHOLANGIOCARCINOMA
     Route: 042
     Dates: start: 20130703, end: 20130703
  5. VENTOLINE [Concomitant]
     Indication: BRONCHIECTASIS
     Dosage: DOSE:2 PUFF(S)
     Route: 055
     Dates: start: 1993
  6. FLOVENT [Concomitant]
     Indication: BRONCHIECTASIS
     Dosage: DOSE:2 PUFF(S)
     Route: 055
     Dates: start: 1993
  7. NORVASC [Concomitant]
     Indication: HYPERTENSION
     Route: 048
     Dates: start: 1994
  8. ATIVAN [Concomitant]
     Indication: ANXIETY
     Route: 048
     Dates: start: 2003
  9. OMEPRAZOLE [Concomitant]
     Indication: DYSPEPSIA
     Route: 048
     Dates: start: 20130410
  10. STEMETIL [Concomitant]
     Indication: NAUSEA
     Route: 048
     Dates: start: 2010
  11. COLACE [Concomitant]
     Indication: CONSTIPATION
     Route: 048
     Dates: start: 20130517
  12. SENNA ALEXANDRINA FRUIT [Concomitant]
     Indication: CONSTIPATION
     Route: 048
     Dates: start: 20130618
  13. MACROBID [Concomitant]
     Indication: URINARY TRACT INFECTION
     Route: 048
     Dates: start: 20130714, end: 20130720

REACTIONS (3)
  - Central nervous system lesion [Not Recovered/Not Resolved]
  - Ileal fistula [Recovered/Resolved]
  - Cardiac arrest [Recovered/Resolved]
